FAERS Safety Report 10626415 (Version 1)
Quarter: 2014Q4

REPORT INFORMATION
  Report Type: Spontaneous
  Country: US (occurrence: US)
  Receive Date: 20141204
  Receipt Date: 20141204
  Transmission Date: 20150529
  Serious: No
  Sender: FDA-Public Use
  Company Number: US-TARO-2013P1019469

PATIENT
  Age: 85 Year
  Sex: Female
  Weight: 55.34 kg

DRUGS (9)
  1. NEXIUM [Concomitant]
     Active Substance: ESOMEPRAZOLE MAGNESIUM
  2. COQ10 [Concomitant]
     Active Substance: UBIDECARENONE
  3. TOPICORT [Suspect]
     Active Substance: DESOXIMETASONE
     Indication: RASH
     Route: 061
     Dates: start: 20130911
  4. TOPICORT [Suspect]
     Active Substance: DESOXIMETASONE
     Indication: DERMATITIS CONTACT
     Route: 061
     Dates: start: 20130911
  5. DILTIAZEM [Concomitant]
     Active Substance: DILTIAZEM
  6. B6 [Concomitant]
     Active Substance: PYRIDOXINE HYDROCHLORIDE
  7. TWO UNSPECIFIED EYE MEDICATIONS [Concomitant]
  8. ^TABACORE^ [Concomitant]
  9. KETOCONAZOLE 2% CREAM [Concomitant]

REACTIONS (6)
  - Burning sensation [Not Recovered/Not Resolved]
  - Hair disorder [Not Recovered/Not Resolved]
  - Drug ineffective [Not Recovered/Not Resolved]
  - Application site pruritus [Not Recovered/Not Resolved]
  - Skin irritation [Not Recovered/Not Resolved]
  - Skin discolouration [Not Recovered/Not Resolved]

NARRATIVE: CASE EVENT DATE: 201309
